FAERS Safety Report 7230611-X (Version None)
Quarter: 2011Q1

REPORT INFORMATION
  Report Type: 
  Country: None (occurrence: None)
  Receive Date: 20110118
  Receipt Date: 20101229
  Transmission Date: 20110831
  Serious: No
  Sender: FDA-Public Use
  Company Number: US-B.I. PHARMACEUTICALS,INC./RIDGEFIELD-2010-BP-11015BP

PATIENT
  Age: 73 Year
  Sex: Female

DRUGS (10)
  1. TRAZOLINE [Concomitant]
     Dosage: 50 MG
  2. CALCIUM [Concomitant]
  3. MICARDIS [Suspect]
     Dosage: 40 MG
     Route: 048
     Dates: start: 20100301
  4. ASPIRIN [Concomitant]
     Dosage: 81 MG
  5. MICARDIS [Suspect]
     Indication: HYPERTENSION
     Dosage: 20 MG
     Route: 048
     Dates: start: 20100201, end: 20100301
  6. EVISTA [Suspect]
     Indication: OSTEOPOROSIS
  7. CYMBALTA [Concomitant]
     Indication: DEPRESSION
  8. CRESTOR [Concomitant]
     Indication: BLOOD CHOLESTEROL INCREASED
  9. SERTALINE [Concomitant]
     Dosage: 50 MG
  10. MULTI-VITAMIN [Concomitant]

REACTIONS (5)
  - HEADACHE [None]
  - OROPHARYNGEAL PAIN [None]
  - DIZZINESS [None]
  - ASTHENIA [None]
  - BLOOD PRESSURE DIASTOLIC INCREASED [None]
